FAERS Safety Report 8811142 (Version 1)
Quarter: 2012Q4

REPORT INFORMATION
  Report Type: Spontaneous
  Country: US (occurrence: None)
  Receive Date: 20120921
  Receipt Date: 20120921
  Transmission Date: 20130627
  Serious: Yes (Other)
  Sender: FDA-Public Use
  Company Number: MIN-00866

PATIENT
  Age: 75 Year
  Sex: Female

DRUGS (2)
  1. MINOCYCLINE [Suspect]
     Indication: REACTIVE ARTHRITIS
  2. PREDNISOLONE [Suspect]

REACTIONS (1)
  - Ankle arthroplasty [None]
